FAERS Safety Report 5080559-4 (Version None)
Quarter: 2006Q3

REPORT INFORMATION
  Report Type: 
  Country: None (occurrence: None)
  Receive Date: 20060815
  Receipt Date: 20060811
  Transmission Date: 20061208
  Serious: Yes (Other)
  Sender: FDA-Public Use
  Company Number: US-GLAXOSMITHKLINE-A0616284A

PATIENT
  Age: 47 Year
  Sex: Female

DRUGS (4)
  1. OASIS MOISTURIZING MOUTH SPRAY [Suspect]
     Indication: DRY MOUTH
     Dates: start: 20060610, end: 20060610
  2. FENUGREEK [Concomitant]
  3. REFRESH [Concomitant]
     Route: 047
  4. GENTEAL [Concomitant]
     Route: 047

REACTIONS (5)
  - ASTHMA [None]
  - COUGH [None]
  - DYSPNOEA [None]
  - RESPIRATION ABNORMAL [None]
  - WHEEZING [None]
